FAERS Safety Report 9254792 (Version 1)
Quarter: 2013Q2

REPORT INFORMATION
  Report Type: Spontaneous
  Country: DE (occurrence: None)
  Receive Date: 20130422
  Receipt Date: 20130422
  Transmission Date: 20140414
  Serious: Yes (Other)
  Sender: FDA-Public Use
  Company Number: 1304-513

PATIENT
  Age: 86 Year
  Sex: Female

DRUGS (3)
  1. EYLEA (AFLIBERCEPT) (INJECTION) (AFLIBERCEPT) [Suspect]
     Indication: AGE-RELATED MACULAR DEGENERATION
     Dates: start: 20130221
  2. XALATAN (LATANOPROST) [Concomitant]
  3. CORTISONE (CORTISONE) [Concomitant]

REACTIONS (4)
  - Arrhythmia [None]
  - Eyelid irritation [None]
  - Wheezing [None]
  - Dyspnoea [None]
